FAERS Safety Report 10097896 (Version 1)
Quarter: 2014Q2

REPORT INFORMATION
  Report Type: Spontaneous
  Country: US (occurrence: US)
  Receive Date: 20140423
  Receipt Date: 20140423
  Transmission Date: 20141212
  Serious: No
  Sender: FDA-Public Use
  Company Number: US-BIOGENIDEC-2014BI035990

PATIENT
  Age: 61 Year
  Sex: Female

DRUGS (8)
  1. TECFIDERA [Suspect]
     Indication: MULTIPLE SCLEROSIS
  2. TECFIDERA [Suspect]
     Indication: MULTIPLE SCLEROSIS
     Route: 048
     Dates: start: 20140216
  3. TECFIDERA [Suspect]
     Indication: MULTIPLE SCLEROSIS
     Dates: start: 20140320
  4. ALLEGRA-D [Concomitant]
  5. BACLOFEN [Concomitant]
  6. FEMTRACE [Concomitant]
  7. ADVIL [Concomitant]
  8. VITAMIN D [Concomitant]

REACTIONS (3)
  - Muscular weakness [Unknown]
  - Multiple sclerosis [Unknown]
  - Prescribed underdose [Not Recovered/Not Resolved]
